FAERS Safety Report 11792279 (Version 1)
Quarter: 2015Q4

REPORT INFORMATION
  Report Type: Report from Study
  Country: US (occurrence: US)
  Receive Date: 20151201
  Receipt Date: 20151201
  Transmission Date: 20160305
  Serious: Yes (Other)
  Sender: FDA-Public Use
  Company Number: US-BAYER-2015-403576

PATIENT
  Age: 41 Year
  Sex: Female
  Weight: 92.97 kg

DRUGS (5)
  1. ADEMPAS [Suspect]
     Active Substance: RIOCIGUAT
     Indication: PULMONARY ARTERIAL HYPERTENSION
     Dosage: 0.5 MG, THREE TIMES A DAY
     Route: 048
  2. ADEMPAS [Suspect]
     Active Substance: RIOCIGUAT
     Indication: PULMONARY ARTERIAL HYPERTENSION
     Dosage: 2.5 MG, TID
     Route: 048
  3. OPSUMIT [Concomitant]
     Active Substance: MACITENTAN
  4. ADEMPAS [Suspect]
     Active Substance: RIOCIGUAT
     Indication: PULMONARY ARTERIAL HYPERTENSION
     Dosage: 2.5 MG, TID
     Route: 048
  5. ADEMPAS [Suspect]
     Active Substance: RIOCIGUAT
     Indication: PULMONARY ARTERIAL HYPERTENSION
     Dosage: UNK
     Dates: start: 20150813

REACTIONS (16)
  - Alopecia [Unknown]
  - Disorientation [None]
  - Diplopia [None]
  - Blood pressure decreased [Unknown]
  - Head discomfort [None]
  - Pyrexia [Unknown]
  - Visual impairment [Unknown]
  - Oxygen saturation decreased [None]
  - Dizziness [Unknown]
  - Feeling abnormal [None]
  - Headache [Unknown]
  - Visual impairment [None]
  - Drug dose titration not performed [None]
  - Headache [None]
  - Blood pressure diastolic decreased [Unknown]
  - Loss of consciousness [None]

NARRATIVE: CASE EVENT DATE: 20151112
